FAERS Safety Report 21575860 (Version 1)
Quarter: 2022Q4

REPORT INFORMATION
  Report Type: Spontaneous
  Country: NL (occurrence: NL)
  Receive Date: 20221110
  Receipt Date: 20221110
  Transmission Date: 20230113
  Serious: Yes (Life-Threatening, Hospitalization)
  Sender: FDA-Public Use
  Company Number: None

PATIENT
  Sex: Female
  Weight: 85 kg

DRUGS (5)
  1. VALSARTAN [Suspect]
     Active Substance: VALSARTAN
     Indication: Cardiac failure
     Dosage: 80 MILLIGRAM DAILY; 1 X PER DAY 1 PIECE,  VALSARTAN 80MG / BRAND NAME NOT SPECIFIED, UNIT DOSE : 80
     Dates: start: 20180120, end: 20210323
  2. SPIRONOLACTONE [Suspect]
     Active Substance: SPIRONOLACTONE
     Indication: Cardiac failure
     Dosage: 1 DOSAGE FORMS DAILY; 1 X PER DAY 1 PIECE, SPIRONOLACTON / BRAND NAME NOT SPECIFIED, UNIT DOSE : 1 D
     Dates: start: 20210120, end: 20210323
  3. SODIUM POLYSTYRENE SULFONATE [Concomitant]
     Active Substance: SODIUM POLYSTYRENE SULFONATE
     Indication: Product used for unknown indication
     Dosage: 3DD 15 MG, POLYSTYRENE SULFONE AFTER PDR SUSP OR/REC 1000MG/G / RESONIUM A POWDER, UNIT DOSE : 15 MG
  4. INSULIN NOS [Concomitant]
     Active Substance: INSULIN NOS
     Indication: Product used for unknown indication
     Dosage: INJECTION/INFUSION, 1 UNITS PER UNITS, INSULIN JUST INJECTION/INFUSION / BRAND NAME NOT SPECIFIED, T
  5. CALCIUM GLUCONATE [Concomitant]
     Active Substance: CALCIUM GLUCONATE
     Indication: Product used for unknown indication
     Dosage: 100 MG/ML, CALCIUM GLUCON INJ/INF 100MG/ML (0.225MMOL CA) / BRAND NAME NOT SPECIFIED, THERAPY START

REACTIONS (1)
  - Hyperkalaemia [Recovered/Resolved]
